FAERS Safety Report 17499590 (Version 1)
Quarter: 2020Q1

REPORT INFORMATION
  Report Type: Spontaneous
  Country: US (occurrence: US)
  Receive Date: 20200304
  Receipt Date: 20200304
  Transmission Date: 20200409
  Serious: No
  Sender: FDA-Public Use
  Company Number: US-PTC THERAPEUTICS, INC.-US-2020PTC000002

PATIENT
  Age: 12 Year
  Sex: Male

DRUGS (1)
  1. EMFLAZA [Suspect]
     Active Substance: DEFLAZACORT
     Indication: MUSCULAR DYSTROPHY
     Dosage: 60 MG, SUNDAY MONDAY AND TUESDAY
     Route: 048

REACTIONS (2)
  - Off label use [Unknown]
  - Surgery [Recovered/Resolved]

NARRATIVE: CASE EVENT DATE: 20191223
